FAERS Safety Report 17435912 (Version 2)
Quarter: 2020Q1

REPORT INFORMATION
  Report Type: Spontaneous
  Country: GB (occurrence: GB)
  Receive Date: 20200219
  Receipt Date: 20200320
  Transmission Date: 20200409
  Serious: Yes (Life-Threatening)
  Sender: FDA-Public Use
  Company Number: GB-MYLANLABS-2020M1018443

PATIENT
  Age: 42 Year
  Sex: Male
  Weight: 107.2 kg

DRUGS (4)
  1. CLOZAPINE. [Suspect]
     Active Substance: CLOZAPINE
     Indication: PRODUCT USED FOR UNKNOWN INDICATION
     Dosage: 150 MILLIGRAM
     Route: 048
     Dates: start: 20191123
  2. DIAZEPAM. [Concomitant]
     Active Substance: DIAZEPAM
     Indication: ANXIETY
     Dosage: 3 MILLIGRAM
     Route: 048
  3. DEPAKOTE [Suspect]
     Active Substance: DIVALPROEX SODIUM
     Indication: PRODUCT USED FOR UNKNOWN INDICATION
     Dosage: 1 MILLIGRAM
     Route: 048
     Dates: start: 20191123
  4. ARIPIPRAZOLE. [Concomitant]
     Active Substance: ARIPIPRAZOLE
     Indication: PSYCHOTIC DISORDER
     Dosage: 10 MILLIGRAM
     Route: 048

REACTIONS (5)
  - Heart rate decreased [Recovering/Resolving]
  - Neutrophil count decreased [Recovering/Resolving]
  - Blood pressure decreased [Recovering/Resolving]
  - Syncope [Recovering/Resolving]
  - Wrong product administered [Unknown]

NARRATIVE: CASE EVENT DATE: 20191123
